FAERS Safety Report 20661324 (Version 1)
Quarter: 2022Q2

REPORT INFORMATION
  Report Type: Report from Study
  Country: US (occurrence: US)
  Receive Date: 20220401
  Receipt Date: 20220401
  Transmission Date: 20220721
  Serious: Yes (Other)
  Sender: FDA-Public Use
  Company Number: US-AMGEN-USASL2022050449

PATIENT
  Age: 79 Year
  Sex: Female

DRUGS (2)
  1. XGEVA [Suspect]
     Active Substance: DENOSUMAB
     Indication: Prophylaxis
     Dosage: UNK
     Route: 065
     Dates: start: 20160801, end: 20211101
  2. XGEVA [Suspect]
     Active Substance: DENOSUMAB
     Indication: Breast cancer metastatic

REACTIONS (4)
  - Apical granuloma [Unknown]
  - Exposed bone in jaw [Not Recovered/Not Resolved]
  - Toothache [Not Recovered/Not Resolved]
  - Blood pressure increased [Unknown]

NARRATIVE: CASE EVENT DATE: 20211001
